FAERS Safety Report 5936223-X (Version None)
Quarter: 2008Q4

REPORT INFORMATION
  Report Type: 
  Country: None (occurrence: None)
  Receive Date: 20081030
  Receipt Date: 20071011
  Transmission Date: 20090506
  Serious: No
  Sender: FDA-Public Use
  Company Number: A0687178A

PATIENT
  Age: 81 Year
  Sex: Female

DRUGS (3)
  1. SEREVENT [Suspect]
     Indication: ASTHMA
     Dosage: 50MCG UNKNOWN
     Route: 055
     Dates: start: 19970101, end: 19970101
  2. TRADOL [Concomitant]
  3. PREDNISONE TAB [Concomitant]

REACTIONS (1)
  - DRUG INEFFECTIVE [None]
